FAERS Safety Report 23909213 (Version 1)
Quarter: 2024Q2

REPORT INFORMATION
  Report Type: Spontaneous
  Country: US (occurrence: US)
  Receive Date: 20240528
  Receipt Date: 20240528
  Transmission Date: 20240716
  Serious: Yes (Other)
  Sender: FDA-Public Use
  Company Number: US-AMNEAL PHARMACEUTICALS-2023-AMRX-03303

PATIENT
  Age: 72 Year
  Sex: Male
  Weight: 90.703 kg

DRUGS (4)
  1. BUPRENORPHINE TRANSDERMAL SYSTEM [Suspect]
     Active Substance: BUPRENORPHINE
     Indication: Product used for unknown indication
     Dosage: 10 MCG/HOUR, 7/DAY
     Route: 062
     Dates: start: 2022, end: 202308
  2. NARCO [Concomitant]
     Indication: Product used for unknown indication
     Dosage: 1 TABLETS, (2000 MG) 4 /DAY
     Route: 048
  3. VITAMIN B3 [Concomitant]
     Active Substance: NIACIN
     Indication: Product used for unknown indication
     Dosage: 1 TABLETS, (1500MG) 2 /DAY
     Route: 048
     Dates: start: 2000
  4. ASCORBIC ACID [Concomitant]
     Active Substance: ASCORBIC ACID
     Indication: Product used for unknown indication
     Dosage: UNK
     Route: 048
     Dates: start: 2000

REACTIONS (3)
  - Seizure [Recovered/Resolved]
  - Chromaturia [Recovered/Resolved]
  - Tremor [Recovered/Resolved]

NARRATIVE: CASE EVENT DATE: 20230101
